FAERS Safety Report 7547806-8 (Version None)
Quarter: 2011Q2

REPORT INFORMATION
  Report Type: 
  Country: None (occurrence: None)
  Receive Date: 20110615
  Receipt Date: 20110606
  Transmission Date: 20111010
  Serious: Yes (Death, Hospitalization)
  Sender: FDA-Public Use
  Company Number: US-BIOGENIDEC-2011BI011176

PATIENT
  Age: 59 Year
  Sex: Female

DRUGS (16)
  1. GLARGINE INSULIN [Concomitant]
     Indication: DIABETES MELLITUS
     Route: 058
     Dates: start: 20110301
  2. TYSABRI [Suspect]
     Indication: PRODUCT USED FOR UNKNOWN INDICATION
     Route: 042
     Dates: start: 20090325, end: 20110124
  3. SIMVASTATIN [Concomitant]
     Route: 048
  4. BACLOFEN [Concomitant]
     Route: 048
  5. ASPIRIN [Concomitant]
     Route: 048
  6. CALCIUM CARBONATE [Concomitant]
     Route: 048
  7. BISACODYL [Concomitant]
     Indication: CONSTIPATION
     Route: 048
  8. SLIDING SCALE INSULIN [Concomitant]
     Indication: DIABETES MELLITUS
     Route: 058
     Dates: start: 20110301
  9. BISOPROLOL FUMARATE [Concomitant]
     Route: 048
  10. DOCUSATE [Concomitant]
     Indication: CONSTIPATION
     Route: 048
  11. MILK OF MAGNESIA TAB [Concomitant]
     Indication: CONSTIPATION
  12. METFORMIN HCL [Concomitant]
     Indication: DIABETES MELLITUS
     Route: 048
  13. HYDROCHLOROTHIAZIDE [Concomitant]
     Route: 048
  14. TIZANIDINE HCL [Concomitant]
     Route: 048
  15. XANAX [Concomitant]
     Indication: ANXIETY
     Route: 048
  16. NEXIUM [Concomitant]
     Route: 048

REACTIONS (2)
  - SUBCUTANEOUS HAEMATOMA [None]
  - PROGRESSIVE MULTIFOCAL LEUKOENCEPHALOPATHY [None]
